FAERS Safety Report 8896378 (Version 2)
Quarter: 2013Q1

REPORT INFORMATION
  Report Type: Spontaneous
  Country: US (occurrence: None)
  Receive Date: 20121031
  Receipt Date: 20121228
  Transmission Date: 20140127
  Serious: Yes (Other)
  Sender: FDA-Public Use
  Company Number: FK201203162

PATIENT
  Sex: Female
  Weight: 108.86 kg

DRUGS (5)
  1. DIPRIVAN [Suspect]
     Indication: SEDATION
     Route: 040
     Dates: start: 20120919
  2. PROPOFOL [Suspect]
     Route: 040
     Dates: start: 20120919
  3. PROPOFOL [Suspect]
     Indication: SEDATION
     Route: 042
     Dates: start: 20120919, end: 20120919
  4. ASPIRIN (ACETYLSALICYLIC ACID) [Concomitant]
  5. TAZAC (NIZATIDINE) [Concomitant]

REACTIONS (1)
  - Blindness transient [None]
